FAERS Safety Report 5497599-3 (Version None)
Quarter: 2007Q4

REPORT INFORMATION
  Report Type: 
  Country: None (occurrence: None)
  Receive Date: 20071025
  Receipt Date: 20071023
  Transmission Date: 20080405
  Serious: Yes (Life-Threatening, Other)
  Sender: FDA-Public Use
  Company Number: PHRM2007FR02441

PATIENT
  Age: 60 Year
  Sex: Female

DRUGS (1)
  1. GLEEVEC [Suspect]
     Indication: CHRONIC MYELOID LEUKAEMIA
     Dosage: 400 MG, QD
     Route: 048
     Dates: start: 20050201

REACTIONS (8)
  - COMPUTERISED TOMOGRAM ABNORMAL [None]
  - COUGH [None]
  - DENGUE FEVER [None]
  - DYSPNOEA [None]
  - LUNG ADENOCARCINOMA STAGE I [None]
  - LUNG LOBECTOMY [None]
  - NODULE [None]
  - TENDON SHEATH LESION EXCISION [None]
